FAERS Safety Report 4289899-X (Version None)
Quarter: 2004Q1

REPORT INFORMATION
  Report Type: 
  Country: None (occurrence: None)
  Receive Date: 20040206
  Receipt Date: 20040128
  Transmission Date: 20041129
  Serious: Yes (Hospitalization, Other)
  Sender: FDA-Public Use
  Company Number: HQWYE587328JAN04

PATIENT
  Age: 72 Year
  Sex: Male

DRUGS (13)
  1. BISOPROLOL (BISOPROLOL, TABLET) [Suspect]
     Indication: HYPERTENSIVE HEART DISEASE
     Dosage: ORAL
     Route: 048
     Dates: end: 20031120
  2. DIGITOXIN TAB [Suspect]
     Indication: ATRIAL FIBRILLATION
     Dosage: 1 DOSE 1X PER 1 DAY, ORAL
     Route: 048
     Dates: start: 20030602, end: 20031121
  3. ATORVASTATIN CALCIUM [Concomitant]
  4. UNAT (TORASEMIDE) [Concomitant]
  5. ACETYLSALICYLIC ACID SRT [Concomitant]
  6. BLOPRESS (CANDESARTAN CILEXETIL) [Concomitant]
  7. ADVAIR (FLUICASONE PROPIONATE/SALMETEROL XNIAFOATE) [Concomitant]
  8. ACETYLCYSTEINE [Concomitant]
  9. NEXIUM [Concomitant]
  10. DREISAVIT N (AMMONIUM PERSULFATE/ASCORBIC ACID/BIOTIN/CALCIUM PANTOTHE [Concomitant]
  11. FERRLECIT [Concomitant]
  12. NEORECORMON (EPOETIN BETA) [Concomitant]
  13. CALCIUM ACETATE (CALCIUM ACETATE) [Concomitant]

REACTIONS (2)
  - CARDIAC ARREST [None]
  - SYNCOPE [None]
